FAERS Safety Report 7153378-2 (Version None)
Quarter: 2010Q4

REPORT INFORMATION
  Report Type: 
  Country: None (occurrence: None)
  Receive Date: 20101213
  Receipt Date: 20101207
  Transmission Date: 20110411
  Serious: Yes (Hospitalization)
  Sender: FDA-Public Use
  Company Number: US-JNJFOC-20101102374

PATIENT
  Sex: Female
  Weight: 49.9 kg

DRUGS (14)
  1. FENTANYL-100 [Suspect]
     Indication: RADICULAR PAIN
     Route: 062
  2. SANDOZ FENTANYL TRANSDERMAL SYSTEM [Suspect]
     Indication: RADICULAR PAIN
     Route: 062
  3. COMPAZINE [Concomitant]
     Indication: NAUSEA
     Route: 048
  4. ALPRAZOLAM [Concomitant]
     Indication: NERVOUSNESS
     Route: 048
  5. ZYRTEC [Concomitant]
     Indication: MULTIPLE ALLERGIES
     Route: 065
  6. SYNTHROID [Concomitant]
     Indication: THYROID DISORDER
     Route: 048
  7. NEXIUM [Concomitant]
     Indication: GASTRIC BYPASS
     Route: 048
  8. CYMBALTA [Concomitant]
     Indication: DEPRESSION
     Route: 048
  9. LIDODERM [Concomitant]
     Indication: RADICULAR PAIN
     Dosage: 12 HOURS ON AND 12 HOURS OFF
     Route: 062
  10. TEMAZEPAM [Concomitant]
     Indication: SLEEP DISORDER
     Route: 048
  11. VICODIN [Concomitant]
     Indication: BREAKTHROUGH PAIN
     Dosage: 7.5/750, 7.5MG 4 TIMES DAILY AS NEEDED
     Route: 048
  12. FLEXERIL [Concomitant]
     Indication: MUSCLE RELAXANT THERAPY
     Dosage: 8 HOURS AS NEEDED
     Route: 048
  13. CORTISONE SHOT [Concomitant]
     Indication: MUSCLE SPASMS
     Route: 065
  14. CITALOPRAM HYDROBROMIDE [Concomitant]
     Indication: DEPRESSION
     Route: 048

REACTIONS (5)
  - AMNESIA [None]
  - APPLICATION SITE PRURITUS [None]
  - APPLICATION SITE RASH [None]
  - DEPRESSION [None]
  - INTRACRANIAL ANEURYSM [None]
